FAERS Safety Report 23263668 (Version 2)
Quarter: 2023Q4

REPORT INFORMATION
  Report Type: Spontaneous
  Country: GR (occurrence: GR)
  Receive Date: 20231205
  Receipt Date: 20231215
  Transmission Date: 20240110
  Serious: Yes (Other)
  Sender: FDA-Public Use
  Company Number: GR-OPELLA-2023OHG017370

PATIENT
  Age: 27 Year
  Sex: Female

DRUGS (10)
  1. LEVOCETIRIZINE [Suspect]
     Active Substance: LEVOCETIRIZINE
     Indication: Rash
     Dosage: UNK
  2. METHYLPREDNISOLONE [Suspect]
     Active Substance: METHYLPREDNISOLONE
     Indication: Rash
     Dosage: UNK
  3. ACYCLOVIR [Suspect]
     Active Substance: ACYCLOVIR
     Indication: Meningitis aseptic
     Dosage: UNK
  4. DOXYCYCLINE [Suspect]
     Active Substance: DOXYCYCLINE
     Indication: Leptospirosis
     Dosage: UNK
  5. CLINDAMYCIN PHOSPHATE [Suspect]
     Active Substance: CLINDAMYCIN PHOSPHATE
     Indication: Capnocytophaga infection
     Dosage: UNK
  6. ACYCLOVIR [Concomitant]
     Active Substance: ACYCLOVIR
     Indication: Meningitis aseptic
     Dosage: UNK
  7. METHYLPREDNISOLONE [Concomitant]
     Active Substance: METHYLPREDNISOLONE
     Indication: Rash
     Dosage: UNK
  8. CLINDAMYCIN PHOSPHATE [Concomitant]
     Active Substance: CLINDAMYCIN PHOSPHATE
     Indication: Capnocytophaga infection
  9. DOXYCYCLINE [Concomitant]
     Active Substance: DOXYCYCLINE
     Indication: Leptospirosis
     Dosage: UNK
  10. RITUXIMAB [Concomitant]
     Active Substance: RITUXIMAB

REACTIONS (7)
  - Cutaneous vasculitis [Unknown]
  - Hypoxia [Unknown]
  - Myocarditis [Unknown]
  - Enzyme level increased [Unknown]
  - Orthopnoea [Unknown]
  - Brain natriuretic peptide increased [Unknown]
  - Off label use [Unknown]
